FAERS Safety Report 11154299 (Version 2)
Quarter: 2016Q2

REPORT INFORMATION
  Report Type: Spontaneous
  Country: US (occurrence: US)
  Receive Date: 20150602
  Receipt Date: 20160601
  Transmission Date: 20160815
  Serious: No
  Sender: FDA-Public Use
  Company Number: US-NOVEN PHARMACEUTICALS, INC.-14US013123

PATIENT
  Age: 17 Year
  Sex: Female

DRUGS (3)
  1. DAYTRANA [Suspect]
     Active Substance: METHYLPHENIDATE
     Indication: ATTENTION DEFICIT/HYPERACTIVITY DISORDER
     Dosage: 30 MG, DAILY
     Route: 062
  2. PREDNISONE. [Concomitant]
     Active Substance: PREDNISONE
     Indication: ECZEMA
  3. DAYTRANA [Suspect]
     Active Substance: METHYLPHENIDATE
     Dosage: 35 MG, USING 15 PLUS 20 MG PATCHES AND THEN TWO 10 MG AND ONE 15 PATCH DUE TO UNAVAILABILITY OF 20MG
     Route: 062

REACTIONS (7)
  - Wrong technique in product usage process [Not Recovered/Not Resolved]
  - Drug dose omission [Recovered/Resolved]
  - Crying [Not Recovered/Not Resolved]
  - Emotional disorder [Not Recovered/Not Resolved]
  - Overdose [Not Recovered/Not Resolved]
  - Off label use [Not Recovered/Not Resolved]
  - Confusional state [Not Recovered/Not Resolved]

NARRATIVE: CASE EVENT DATE: 20141210
